FAERS Safety Report 9646165 (Version 2)
Quarter: 2013Q4

REPORT INFORMATION
  Report Type: Spontaneous
  Country: US (occurrence: US)
  Receive Date: 20131025
  Receipt Date: 20131204
  Transmission Date: 20140711
  Serious: Yes (Other)
  Sender: FDA-Public Use
  Company Number: US-PFIZER INC-2013306075

PATIENT
  Age: 58 Year
  Sex: Female
  Weight: 68.03 kg

DRUGS (3)
  1. LYRICA [Suspect]
     Indication: SYSTEMIC LUPUS ERYTHEMATOSUS
     Dosage: 300 MG, 2X/DAY
     Route: 048
     Dates: start: 2003
  2. LYRICA [Suspect]
     Indication: FIBROMYALGIA
  3. NEURONTIN [Concomitant]
     Indication: NEURALGIA
     Dosage: 600 MG, 3X/DAY

REACTIONS (2)
  - Fall [Unknown]
  - Upper limb fracture [Unknown]
